FAERS Safety Report 12635892 (Version 1)
Quarter: 2016Q3

REPORT INFORMATION
  Report Type: Report from Study
  Country: AU (occurrence: AU)
  Receive Date: 20160809
  Receipt Date: 20160809
  Transmission Date: 20161109
  Serious: Yes (Hospitalization)
  Sender: FDA-Public Use
  Company Number: AU-ACTELION-A-CH2016-140251

PATIENT
  Age: 77 Year
  Sex: Female

DRUGS (2)
  1. REVATIO [Suspect]
     Active Substance: SILDENAFIL CITRATE
     Indication: PULMONARY ARTERIAL HYPERTENSION
     Dosage: 20 MG, TID
     Route: 048
     Dates: start: 20160704
  2. OPSUMIT [Suspect]
     Active Substance: MACITENTAN
     Indication: PULMONARY ARTERIAL HYPERTENSION
     Dosage: 10 MG, OD
     Route: 048
     Dates: start: 20160630

REACTIONS (7)
  - Arthralgia [Unknown]
  - Hypervolaemia [Unknown]
  - Disease progression [Unknown]
  - Right ventricular failure [Unknown]
  - Condition aggravated [Unknown]
  - Escherichia urinary tract infection [Unknown]
  - Pulmonary arterial hypertension [Unknown]
